FAERS Safety Report 4638390-7 (Version None)
Quarter: 2005Q2

REPORT INFORMATION
  Report Type: 
  Country: None (occurrence: None)
  Receive Date: 20050415
  Receipt Date: 20050324
  Transmission Date: 20051028
  Serious: Yes (Hospitalization)
  Sender: FDA-Public Use
  Company Number: GBS050216702

PATIENT
  Age: 59 Year
  Sex: Female
  Weight: 56 kg

DRUGS (5)
  1. GEMZAR [Suspect]
     Indication: MALIGNANT NEOPLASM OF AMPULLA OF VATER
     Dosage: 1000 MG/M2
     Route: 042
     Dates: start: 20050112, end: 20050126
  2. GEMZAR [Suspect]
     Indication: METASTASES TO LIVER
     Dosage: 1000 MG/M2
     Route: 042
     Dates: start: 20050112, end: 20050126
  3. GEMZAR [Suspect]
     Indication: METASTASIS
     Dosage: 1000 MG/M2
     Route: 042
     Dates: start: 20050112, end: 20050126
  4. ANTIEMETICS [Concomitant]
  5. ANTIBIOTICS [Concomitant]

REACTIONS (12)
  - ABSCESS [None]
  - ARTHRITIS BACTERIAL [None]
  - CYST [None]
  - ERYTHEMA [None]
  - JOINT SWELLING [None]
  - PHLEBITIS INFECTIVE [None]
  - SKIN EXFOLIATION [None]
  - SOFT TISSUE INFECTION [None]
  - STREPTOCOCCAL INFECTION [None]
  - SWELLING [None]
  - TOXIC SKIN ERUPTION [None]
  - VASCULITIS [None]
